FAERS Safety Report 23516171 (Version 2)
Quarter: 2024Q1

REPORT INFORMATION
  Report Type: Spontaneous
  Country: SI (occurrence: SI)
  Receive Date: 20240213
  Receipt Date: 20240302
  Transmission Date: 20240410
  Serious: Yes (Other)
  Sender: FDA-Public Use
  Company Number: SI-TEVA-VS-3156529

PATIENT
  Sex: Male

DRUGS (9)
  1. VINORELBINE [Suspect]
     Active Substance: VINORELBINE TARTRATE
     Indication: Salivary gland cancer
     Dosage: ON DAYS 1 AND 8; Q3 [SIC]
     Route: 065
  2. BICALUTAMIDE [Suspect]
     Active Substance: BICALUTAMIDE
     Indication: Salivary gland cancer
     Route: 065
  3. ZOLEDRONIC ACID [Concomitant]
     Active Substance: ZOLEDRONIC ACID
     Indication: Product used for unknown indication
     Route: 065
     Dates: start: 201503
  4. ABIRATERONE ACETATE [Suspect]
     Active Substance: ABIRATERONE ACETATE
     Indication: Salivary gland cancer
     Route: 065
  5. PACLITAXEL [Concomitant]
     Active Substance: PACLITAXEL
     Indication: Salivary gland cancer
     Dosage: FOR 8 CYCLES
     Route: 065
     Dates: start: 201503
  6. TRASTUZUMAB [Suspect]
     Active Substance: TRASTUZUMAB
     Indication: Salivary gland cancer
     Dosage: WITH VINORELBINE
     Route: 065
  7. TRASTUZUMAB [Suspect]
     Active Substance: TRASTUZUMAB
     Indication: Salivary gland cancer
     Dosage: Q3 [SIC] FOR 8CYCLES (WITH PACLITAXEL)
     Route: 065
     Dates: start: 201503
  8. TRASTUZUMAB [Suspect]
     Active Substance: TRASTUZUMAB
     Indication: Salivary gland cancer
     Dosage: TRASTUZUMAB MONOTHERAPY
     Route: 065
  9. GOSERELIN [Suspect]
     Active Substance: GOSERELIN
     Indication: Salivary gland cancer
     Route: 065

REACTIONS (3)
  - Endocrine disorder [Unknown]
  - Drug intolerance [Unknown]
  - Drug ineffective [Unknown]
